FAERS Safety Report 10225054 (Version 1)
Quarter: 2014Q2

REPORT INFORMATION
  Report Type: Spontaneous
  Country: BR (occurrence: BR)
  Receive Date: 20140609
  Receipt Date: 20140609
  Transmission Date: 20141212
  Serious: Yes (Other)
  Sender: FDA-Public Use
  Company Number: PHHY2014BR069951

PATIENT
  Sex: Female
  Weight: 100 kg

DRUGS (5)
  1. FORASEQ [Suspect]
     Indication: ASTHMA
     Dosage: 2 CAPSULES OF EACH TREATMENT DAILY
     Route: 055
  2. APRESOLIN [Concomitant]
     Indication: HYPERTENSION
     Dosage: 2 DF, DAILY
     Route: 048
  3. CARDIAZEM//DILTIAZEM HYDROCHLORIDE [Concomitant]
     Indication: ASTHMA
     Dosage: 120 MG, BID
     Route: 048
  4. ACETYLCYSTEINE [Concomitant]
     Indication: ASTHMA
     Dosage: 600 UNK, ONLY WHEN SHE HAD AN EPISODE SPORADICALLY
     Route: 048
  5. DUOVENT N [Concomitant]
     Indication: ASTHMA
     Dosage: UNK AFTER SOME PHYSICLA EFFORT
     Route: 055

REACTIONS (3)
  - Osteoporosis [Recovering/Resolving]
  - Hiatus hernia [Not Recovered/Not Resolved]
  - Dyspnoea [Not Recovered/Not Resolved]
